FAERS Safety Report 26055208 (Version 3)
Quarter: 2025Q4

REPORT INFORMATION
  Report Type: Report from Study
  Country: US (occurrence: US)
  Receive Date: 20251117
  Receipt Date: 20251212
  Transmission Date: 20260118
  Serious: No
  Sender: MALLINCKRODT
  Company Number: US-MALLINCKRODT-MNK202507101

PATIENT
  Age: 49 Year
  Sex: Female
  Weight: 155 kg

DRUGS (3)
  1. CORTICOTROPIN [Suspect]
     Active Substance: CORTICOTROPIN
     Indication: Ocular pemphigoid
     Dosage: 80 UNITS
     Route: 058
     Dates: start: 20251108
  2. CEQUA [Concomitant]
     Active Substance: CYCLOSPORINE
     Dosage: UNKNOWN
  3. PRED FORTE [Concomitant]
     Active Substance: PREDNISOLONE ACETATE
     Dosage: UNKNOWN

REACTIONS (3)
  - Myalgia [Unknown]
  - Headache [Recovered/Resolved]
  - Fatigue [Unknown]

NARRATIVE: CASE EVENT DATE: 20251101
